FAERS Safety Report 4272485-5 (Version None)
Quarter: 2004Q1

REPORT INFORMATION
  Report Type: 
  Country: None (occurrence: None)
  Receive Date: 20040115
  Receipt Date: 20040108
  Transmission Date: 20041129
  Serious: Yes (Hospitalization)
  Sender: FDA-Public Use
  Company Number: WAES 0401USA00599

PATIENT
  Age: 82 Year
  Sex: Female

DRUGS (5)
  1. CALCIUM (UNSPECIFIED) [Concomitant]
  2. COSOPT [Suspect]
     Route: 047
  3. XALATAN [Suspect]
     Route: 047
  4. REMERON [Concomitant]
  5. ACTONEL [Concomitant]

REACTIONS (2)
  - CATARACT [None]
  - INTRAOCULAR PRESSURE TEST ABNORMAL [None]
